FAERS Safety Report 7307770-3 (Version None)
Quarter: 2011Q1

REPORT INFORMATION
  Report Type: 
  Country: None (occurrence: None)
  Receive Date: 20110223
  Receipt Date: 20101029
  Transmission Date: 20110831
  Serious: No
  Sender: FDA-Public Use
  Company Number: US-BAYER-201023292BCC

PATIENT
  Sex: Male
  Weight: 71.818 kg

DRUGS (4)
  1. ALEVE [Suspect]
     Indication: BACK PAIN
     Route: 048
  2. METOPROLOL [Concomitant]
  3. NORVASC [Concomitant]
  4. ACETAMINOPHEN AND OXYCODONE HCL [Concomitant]
     Indication: BACK PAIN

REACTIONS (1)
  - DIZZINESS [None]
